FAERS Safety Report 7720414-1 (Version None)
Quarter: 2011Q3

REPORT INFORMATION
  Report Type: 
  Country: None (occurrence: None)
  Receive Date: 20110831
  Receipt Date: 20110823
  Transmission Date: 20111222
  Serious: Yes (Hospitalization)
  Sender: FDA-Public Use
  Company Number: FR-KINGPHARMUSA00001-K201100982

PATIENT
  Age: 89 Year
  Sex: Male
  Weight: 48 kg

DRUGS (7)
  1. ALDACTONE [Concomitant]
     Dosage: UNK
     Dates: end: 20110228
  2. ALTACE [Suspect]
     Dosage: 5 MG, QD
     Route: 048
     Dates: end: 20100228
  3. BUMETANIDE [Concomitant]
     Dosage: UNK
  4. CREON [Concomitant]
     Dosage: UNK
  5. ARIXTRA [Concomitant]
     Dosage: UNK
  6. TAMSULOSIN HCL [Concomitant]
     Dosage: UNK
  7. PREDNISOLONE [Concomitant]

REACTIONS (9)
  - DIARRHOEA [None]
  - CACHEXIA [None]
  - DEHYDRATION [None]
  - DRY MOUTH [None]
  - DEPRESSED LEVEL OF CONSCIOUSNESS [None]
  - ABDOMINAL PAIN [None]
  - FAECALOMA [None]
  - HYPONATRAEMIA [None]
  - SOMNOLENCE [None]
